FAERS Safety Report 9291402 (Version 1)
Quarter: 2013Q2

REPORT INFORMATION
  Report Type: Spontaneous
  Country: US (occurrence: US)
  Receive Date: 20130515
  Receipt Date: 20130515
  Transmission Date: 20140414
  Serious: No
  Sender: FDA-Public Use
  Company Number: US-BAUSCH-BL-2013-000650

PATIENT
  Age: 84 Year
  Sex: Female

DRUGS (3)
  1. BROMDAY 0.09% [Suspect]
     Indication: CATARACT OPERATION
     Route: 047
     Dates: start: 20120416
  2. DIFLUPREDNATE [Concomitant]
     Indication: CATARACT OPERATION
     Dates: start: 20120416
  3. MOXIFLOXACIN HYDROCHLORIDE [Concomitant]
     Indication: CATARACT OPERATION
     Route: 047
     Dates: start: 20120416

REACTIONS (4)
  - Eye pain [Not Recovered/Not Resolved]
  - Eye pain [Not Recovered/Not Resolved]
  - Foreign body sensation in eyes [Not Recovered/Not Resolved]
  - Expired drug administered [Unknown]
